FAERS Safety Report 14226237 (Version 2)
Quarter: 2017Q4

REPORT INFORMATION
  Report Type: Spontaneous
  Country: FR (occurrence: FR)
  Receive Date: 20171127
  Receipt Date: 20171228
  Transmission Date: 20180321
  Serious: Yes (Hospitalization)
  Sender: FDA-Public Use
  Company Number: FR-PFIZER INC-2017500417

PATIENT
  Age: 55 Year
  Sex: Male

DRUGS (13)
  1. LEVOFLOXACINE ARROW [Suspect]
     Active Substance: LEVOFLOXACIN
     Indication: TUBERCULOSIS
     Dosage: 1 G, 2X/DAY
     Route: 048
     Dates: start: 20171020, end: 20171031
  2. ACTISKENAN [Concomitant]
     Active Substance: MORPHINE SULFATE
     Dosage: UNK
  3. BEDAQUILINE [Concomitant]
     Active Substance: BEDAQUILINE
     Dosage: UNK
  4. ACTISKENAN [Concomitant]
     Active Substance: MORPHINE SULFATE
     Indication: WITHDRAWAL SYNDROME
     Dosage: UNK
     Dates: start: 20171013, end: 20171031
  5. AMIKACIN [Concomitant]
     Active Substance: AMIKACIN
     Dosage: UNK
     Dates: start: 20171020, end: 20171031
  6. ZYVOXID [Suspect]
     Active Substance: LINEZOLID
     Indication: TUBERCULOSIS
     Dosage: 600 MG, 1X/DAY
     Route: 048
     Dates: start: 20171020, end: 20171031
  7. DELAMANID [Concomitant]
     Active Substance: DELAMANID
     Dosage: UNK
  8. CLOFAZIMINE [Concomitant]
     Active Substance: CLOFAZIMINE
     Dosage: UNK
  9. BEDAQUILINE [Concomitant]
     Active Substance: BEDAQUILINE
     Dosage: UNK
     Dates: start: 20171020, end: 20171031
  10. AMIKACIN [Concomitant]
     Active Substance: AMIKACIN
     Dosage: UNK
  11. DELAMANID [Concomitant]
     Active Substance: DELAMANID
     Dosage: UNK
     Dates: start: 20171020, end: 20171031
  12. CLOFAZIMINE [Concomitant]
     Active Substance: CLOFAZIMINE
     Dosage: UNK
     Dates: start: 20171020, end: 20171031
  13. ACTISKENAN [Concomitant]
     Active Substance: MORPHINE SULFATE
     Dosage: UNK, SINGLE
     Dates: start: 20171102, end: 20171102

REACTIONS (5)
  - Confusional state [Recovered/Resolved]
  - Depressed level of consciousness [Recovered/Resolved]
  - Myoclonus [Recovered/Resolved]
  - Agitation [Recovered/Resolved]
  - Encephalopathy [Recovered/Resolved]

NARRATIVE: CASE EVENT DATE: 20171028
